FAERS Safety Report 6575607-6 (Version None)
Quarter: 2010Q1

REPORT INFORMATION
  Report Type: 
  Country: None (occurrence: None)
  Receive Date: 20100209
  Receipt Date: 20100202
  Transmission Date: 20100710
  Serious: Yes (Other)
  Sender: FDA-Public Use
  Company Number: B0600763A

PATIENT
  Sex: Male

DRUGS (4)
  1. REQUIP [Suspect]
     Indication: DRUG USE FOR UNKNOWN INDICATION
     Dosage: 3MG THREE TIMES PER DAY
     Route: 048
     Dates: start: 20071016
  2. PERMAX [Concomitant]
     Route: 048
     Dates: start: 20020101
  3. PRAMIPEXOLE DIHYDROCHLORIDE [Concomitant]
     Route: 048
     Dates: start: 20070801, end: 20071001
  4. MENESIT [Concomitant]
     Dosage: 300MG PER DAY
     Route: 048

REACTIONS (1)
  - INTERSTITIAL LUNG DISEASE [None]
